FAERS Safety Report 8623393-8 (Version None)
Quarter: 2012Q3

REPORT INFORMATION
  Report Type: 
  Country: None (occurrence: None)
  Receive Date: 20120824
  Receipt Date: 20120824
  Transmission Date: 20120928
  Serious: No
  Sender: FDA-Public Use
  Company Number: None

PATIENT
  Sex: Male
  Weight: 87.5442 kg

DRUGS (2)
  1. LEVOFLOXACIN [Suspect]
     Indication: BRONCHITIS
     Dosage: ONE DAILY, PO
     Route: 048
     Dates: start: 20120225, end: 20120226
  2. LEVOFLOXACIN [Suspect]
     Indication: BRONCHITIS
     Dosage: ONCE DAILY
     Dates: start: 20120225

REACTIONS (2)
  - TENDON PAIN [None]
  - PAIN [None]
